FAERS Safety Report 9358062 (Version 2)
Quarter: 2013Q3

REPORT INFORMATION
  Report Type: Spontaneous
  Country: US (occurrence: US)
  Receive Date: 20130620
  Receipt Date: 20130702
  Transmission Date: 20140515
  Serious: No
  Sender: FDA-Public Use
  Company Number: US-PFIZER INC-2011195139

PATIENT
  Age: 60 Year
  Sex: Female
  Weight: 127 kg

DRUGS (3)
  1. LYRICA [Suspect]
     Indication: FIBROMYALGIA
     Dosage: 100 MG, UNK
  2. LYRICA [Suspect]
     Indication: NERVE INJURY
     Dosage: 100 MG, 1X/DAY
  3. LYRICA [Suspect]
     Indication: POSTOPERATIVE CARE

REACTIONS (3)
  - Incorrect dose administered [Unknown]
  - Pain [Not Recovered/Not Resolved]
  - Movement disorder [Not Recovered/Not Resolved]
